FAERS Safety Report 9100637 (Version 1)
Quarter: 2013Q1

REPORT INFORMATION
  Report Type: Spontaneous
  Country: US (occurrence: US)
  Receive Date: 20130215
  Receipt Date: 20130215
  Transmission Date: 20140127
  Serious: Yes (Hospitalization)
  Sender: FDA-Public Use
  Company Number: US-BAYER-2013-019156

PATIENT
  Age: 18 Year
  Sex: Female

DRUGS (8)
  1. YASMIN [Suspect]
  2. IBUPROFEN [Concomitant]
     Dosage: 600 MG, UNK
     Route: 048
     Dates: start: 20031203
  3. CELEXA [Concomitant]
     Dosage: 30 MG, UNK
     Route: 048
     Dates: start: 20031219
  4. ZITHROMAX Z-PAK [Concomitant]
     Dosage: 250 MG, UNK
     Route: 048
     Dates: start: 20031219
  5. LEXAPRO [Concomitant]
  6. MOTRIN [Concomitant]
  7. TYLENOL #3 [Concomitant]
  8. SOLU-MEDROL [Concomitant]

REACTIONS (2)
  - Pulmonary embolism [None]
  - Deep vein thrombosis [None]
